FAERS Safety Report 4505716-4 (Version None)
Quarter: 2004Q4

REPORT INFORMATION
  Report Type: 
  Country: None (occurrence: None)
  Receive Date: 20041018
  Receipt Date: 20040824
  Transmission Date: 20050328
  Serious: No
  Sender: FDA-Public Use
  Company Number: 208634

PATIENT
  Age: 65 Year
  Sex: Female

DRUGS (12)
  1. XOLAIR [Suspect]
     Indication: ASTHMA
     Dosage: 150 MG, 1/MONTH, SUBCUTANEOUS
     Route: 058
     Dates: start: 20040201
  2. DIFLUCAN [Concomitant]
  3. LEVAQUIN [Concomitant]
  4. MYLANTA (SIMETHICONE, ALUMINUM HYDROXIDE, MAGNESIUM HYDROXIDE) [Concomitant]
  5. ADVAIR (SALMETEROL XINAFOATE, FLUTICASONE PROPIONATE) [Concomitant]
  6. XOPENEX [Concomitant]
  7. OVAR (BECLOMETHASONE DIPROPIONATE) [Concomitant]
  8. SINGULAIR [Concomitant]
  9. ZOLOFT [Concomitant]
  10. NEURONTIN [Concomitant]
  11. ENSURE (NUTRITIONAL SUPPLEMENT) [Concomitant]
  12. NEXIUM [Concomitant]

REACTIONS (3)
  - FAECES DISCOLOURED [None]
  - ORAL CANDIDIASIS [None]
  - UPPER RESPIRATORY TRACT INFECTION [None]
